FAERS Safety Report 4817860-2 (Version None)
Quarter: 2005Q3

REPORT INFORMATION
  Report Type: 
  Country: None (occurrence: None)
  Receive Date: 20050929
  Receipt Date: 20050627
  Transmission Date: 20060218
  Serious: No
  Sender: FDA-Public Use
  Company Number: 05P-163-0304112-00

PATIENT
  Age: 81 Year
  Sex: Female
  Weight: 62.1428 kg

DRUGS (5)
  1. HUMIRA [Suspect]
     Indication: RHEUMATOID ARTHRITIS
     Dosage: 40 MG, 2 IN 1 M, SUBCUTANEOUS
     Route: 058
     Dates: start: 20040101
  2. PREDNISONE [Concomitant]
  3. FOLIC ACID [Concomitant]
  4. POTASSIUM CHLORIDE [Concomitant]
  5. FORTURO [Concomitant]

REACTIONS (1)
  - JOINT EFFUSION [None]
